FAERS Safety Report 7077448-2 (Version None)
Quarter: 2010Q4

REPORT INFORMATION
  Report Type: 
  Country: None (occurrence: None)
  Receive Date: 20101101
  Receipt Date: 20101027
  Transmission Date: 20110411
  Serious: Yes (Other)
  Sender: FDA-Public Use
  Company Number: RO-BRISTOL-MYERS SQUIBB COMPANY-15091788

PATIENT
  Age: 31 Year
  Sex: Female

DRUGS (2)
  1. ENTECAVIR [Suspect]
     Indication: HEPATITIS B
     Dosage: TABLET FORM.
     Route: 048
     Dates: start: 20090430
  2. ZEFFIX [Suspect]

REACTIONS (5)
  - BREAST FEEDING [None]
  - CAESAREAN SECTION [None]
  - MENSTRUAL DISORDER [None]
  - NORMAL NEWBORN [None]
  - PREGNANCY [None]
